FAERS Safety Report 17648813 (Version 1)
Quarter: 2020Q2

REPORT INFORMATION
  Report Type: Spontaneous
  Country: CA (occurrence: CA)
  Receive Date: 20200409
  Receipt Date: 20200409
  Transmission Date: 20200713
  Serious: Yes (Other)
  Sender: FDA-Public Use
  Company Number: CA-RECORDATI RARE DISEASES-2082552

PATIENT
  Age: 52 Year
  Sex: Female

DRUGS (12)
  1. VITAMIN B12 [Concomitant]
     Active Substance: CYANOCOBALAMIN
  2. IRON [Concomitant]
     Active Substance: IRON
  3. SANDOSTATIN LAR DEPOT [Suspect]
     Active Substance: OCTREOTIDE ACETATE
     Route: 030
     Dates: end: 20130523
  4. METFORMIN [Concomitant]
     Active Substance: METFORMIN HYDROCHLORIDE
  5. SIGNIFOR [Suspect]
     Active Substance: PASIREOTIDE DIASPARTATE
     Indication: ACROMEGALY
     Route: 030
     Dates: start: 20171026
  6. SANDOSTATIN LAR DEPOT [Suspect]
     Active Substance: OCTREOTIDE ACETATE
     Route: 030
     Dates: start: 20110720
  7. CABERGOLINE. [Suspect]
     Active Substance: CABERGOLINE
  8. INSULIN [Concomitant]
     Active Substance: INSULIN NOS
  9. CRESTOR [Concomitant]
     Active Substance: ROSUVASTATIN CALCIUM
  10. SOMAVERT [Concomitant]
     Active Substance: PEGVISOMANT
  11. PEGVISOMANT [Suspect]
     Active Substance: PEGVISOMANT
  12. ASA [Concomitant]
     Active Substance: ASPIRIN

REACTIONS (6)
  - Blood glucose decreased [Recovering/Resolving]
  - Diabetes mellitus [Unknown]
  - Muscle rupture [Unknown]
  - Body temperature increased [Recovering/Resolving]
  - Drug resistance [Unknown]
  - Blood pressure increased [Unknown]

NARRATIVE: CASE EVENT DATE: 2018
